FAERS Safety Report 4861138-8 (Version None)
Quarter: 2005Q4

REPORT INFORMATION
  Report Type: 
  Country: None (occurrence: None)
  Receive Date: 20051216
  Receipt Date: 20051202
  Transmission Date: 20060501
  Serious: Yes (Hospitalization)
  Sender: FDA-Public Use
  Company Number: 2005P1000600

PATIENT
  Age: 38 Year
  Sex: Female

DRUGS (2)
  1. NICARDIPINE HCL [Suspect]
     Indication: TOCOLYSIS
     Dosage: 2.0 MG; QH;IV     2.2 MG;QH;UNKNOWN    1.0 MG;QH;UNKNOWN
     Route: 042
  2. SALBUTAMOL (SALBUTAMOL) [Suspect]
     Dosage: 1.2 MG;QH;

REACTIONS (16)
  - ACUTE PULMONARY OEDEMA [None]
  - BLADDER DISTENSION [None]
  - CAESAREAN SECTION [None]
  - CARDIAC MURMUR [None]
  - CHOLESTASIS OF PREGNANCY [None]
  - COMPLICATIONS OF MATERNAL EXPOSURE TO THERAPEUTIC DRUGS [None]
  - CYANOSIS [None]
  - DRUG EXPOSURE DURING PREGNANCY [None]
  - DRUG INEFFECTIVE [None]
  - DYSPNOEA [None]
  - HEART RATE INCREASED [None]
  - OXYGEN SATURATION DECREASED [None]
  - PREMATURE BABY [None]
  - RALES [None]
  - RESPIRATORY DISTRESS [None]
  - RESPIRATORY RATE INCREASED [None]
